FAERS Safety Report 8902828 (Version 3)
Quarter: 2013Q3

REPORT INFORMATION
  Report Type: Report from Study
  Country: US (occurrence: US)
  Receive Date: 20121112
  Receipt Date: 20130808
  Transmission Date: 20140515
  Serious: Yes (Hospitalization)
  Sender: FDA-Public Use
  Company Number: US-BRISTOL-MYERS SQUIBB COMPANY-17095480

PATIENT
  Age: 75 Year
  Sex: Female
  Weight: 61.22 kg

DRUGS (6)
  1. CARBOPLATIN [Suspect]
     Indication: NON-SMALL CELL LUNG CANCER
     Dosage: 1DF: AUC=5 ON DAY 1 OF 3WK CYCLE?CYCLE 2: AUC 4?CYCLE 3,4+ 5: AUC 3:500MG?RESUMED ON 05OCT11
     Dates: start: 20110608
  2. GEMCITABINE HCL [Suspect]
     Indication: NON-SMALL CELL LUNG CANCER
     Dosage: C2D1,C2D8: 750MG?C3D1,C3D8,C4D1,C5D1: 500MG?RESUMED ON 05OCT11
     Route: 042
     Dates: start: 20110608
  3. LORAZEPAM [Concomitant]
     Dates: start: 20110525, end: 20110909
  4. SENNA [Concomitant]
     Dosage: SENNA ALEXANDRIA
     Dates: start: 201106, end: 20110909
  5. AMLODIPINE BESILATE + OLMESARTAN MEDOXOMIL [Concomitant]
     Indication: HYPERTENSION
  6. OSCAL [Concomitant]

REACTIONS (1)
  - Duodenal ulcer [Recovered/Resolved]
